FAERS Safety Report 5197523-7 (Version None)
Quarter: 2006Q4

REPORT INFORMATION
  Report Type: 
  Country: None (occurrence: None)
  Receive Date: 20060926
  Receipt Date: 20060317
  Transmission Date: 20070319
  Serious: Yes (Life-Threatening, Hospitalization)
  Sender: FDA-Public Use
  Company Number: PHEH2006US03721

PATIENT
  Sex: Female

DRUGS (1)
  1. VOLTAREN-XR [Suspect]

REACTIONS (5)
  - ABDOMINAL PAIN [None]
  - ANAEMIA [None]
  - DIZZINESS [None]
  - RECTAL HAEMORRHAGE [None]
  - TRANSFUSION [None]
